FAERS Safety Report 7928363-0 (Version None)
Quarter: 2011Q4

REPORT INFORMATION
  Report Type: 
  Country: None (occurrence: None)
  Receive Date: 20111118
  Receipt Date: 20111111
  Transmission Date: 20120403
  Serious: Yes (Other)
  Sender: FDA-Public Use
  Company Number: PHHY2011MA100591

PATIENT
  Age: 53 Year
  Sex: Female

DRUGS (1)
  1. CIPRO [Suspect]
     Indication: DACRYOCYSTITIS
     Route: 048

REACTIONS (11)
  - INFLUENZA LIKE ILLNESS [None]
  - ARTHRALGIA [None]
  - NORMOCHROMIC NORMOCYTIC ANAEMIA [None]
  - ACUTE FEBRILE NEUTROPHILIC DERMATOSIS [None]
  - PAPULE [None]
  - PAIN [None]
  - INFLAMMATION [None]
  - PROTEINURIA [None]
  - PYREXIA [None]
  - MYALGIA [None]
  - LEUKOCYTOSIS [None]
